FAERS Safety Report 8001233-8 (Version None)
Quarter: 2011Q4

REPORT INFORMATION
  Report Type: 
  Country: None (occurrence: None)
  Receive Date: 20111222
  Receipt Date: 20111219
  Transmission Date: 20120403
  Serious: Yes (Hospitalization, Other)
  Sender: FDA-Public Use
  Company Number: US-AMGEN-USACT2011067535

PATIENT
  Age: 59 Year
  Sex: Male
  Weight: 87.6 kg

DRUGS (3)
  1. PANITUMUMAB [Suspect]
     Indication: BILE DUCT CANCER
  2. GEMCITABINE [Concomitant]
     Indication: BILE DUCT CANCER
     Dosage: 1000 MG/M2, QWK
     Route: 042
     Dates: start: 20111206
  3. OXALIPLATIN [Concomitant]
     Indication: BILE DUCT CANCER
     Dosage: 85 MG/M2, QWK
     Route: 042
     Dates: start: 20111206

REACTIONS (2)
  - HAEMATOCHEZIA [None]
  - HAEMATOCRIT DECREASED [None]
